FAERS Safety Report 6016188-5 (Version None)
Quarter: 2008Q4

REPORT INFORMATION
  Report Type: 
  Country: None (occurrence: None)
  Receive Date: 20081217
  Receipt Date: 20080922
  Transmission Date: 20090506
  Serious: Yes (Hospitalization, Other)
  Sender: FDA-Public Use
  Company Number: US-WYE-H04585408

PATIENT
  Age: 63 Year
  Sex: Male

DRUGS (6)
  1. TORISEL [Suspect]
     Indication: RENAL CELL CARCINOMA
     Dosage: INTRAVENOUS
     Route: 042
     Dates: start: 20080501, end: 20080618
  2. ZOMETA [Concomitant]
  3. CRESTOR [Concomitant]
  4. DILTIAZEM [Concomitant]
  5. MICARDIS [Concomitant]
  6. SPIRIVA [Concomitant]

REACTIONS (1)
  - RENAL FAILURE [None]
